FAERS Safety Report 16041372 (Version 2)
Quarter: 2019Q1

REPORT INFORMATION
  Report Type: Spontaneous
  Country: NL (occurrence: NL)
  Receive Date: 20190306
  Receipt Date: 20190313
  Transmission Date: 20190418
  Serious: Yes (Other)
  Sender: FDA-Public Use
  Company Number: NL-APOTEX-2019AP009083

PATIENT
  Age: 47 Year
  Sex: Male

DRUGS (14)
  1. ISONIAZID. [Suspect]
     Active Substance: ISONIAZID
     Indication: PULMONARY TUBERCULOSIS
     Dosage: 300 MG, UNK
     Route: 065
  2. MOXIFLOXACIN. [Suspect]
     Active Substance: MOXIFLOXACIN
     Indication: PULMONARY TUBERCULOSIS
     Dosage: 400 MG, UNK
     Route: 065
  3. INSULIN [Concomitant]
     Active Substance: INSULIN NOS
     Indication: TYPE 2 DIABETES MELLITUS
     Dosage: 4 TO 30 UNITS , TID, SHORT-ACTING INSULIN
     Route: 065
  4. RIFAMPIN. [Suspect]
     Active Substance: RIFAMPIN
     Dosage: 900 MG, UNK
     Route: 065
  5. VITAMINS                           /00067501/ [Concomitant]
     Active Substance: VITAMINS
     Indication: PRODUCT USED FOR UNKNOWN INDICATION
     Dosage: UNK
     Route: 065
  6. RIFAMPIN. [Suspect]
     Active Substance: RIFAMPIN
     Dosage: 1800 MG, UNK
     Route: 065
  7. ETHAMBUTOL [Suspect]
     Active Substance: ETHAMBUTOL HYDROCHLORIDE
     Indication: PULMONARY TUBERCULOSIS
     Dosage: 1000 MG, UNK
     Route: 065
  8. MOXIFLOXACIN. [Suspect]
     Active Substance: MOXIFLOXACIN
     Dosage: 600 MG, UNK
     Route: 065
  9. RIFAMPIN. [Suspect]
     Active Substance: RIFAMPIN
     Indication: PULMONARY TUBERCULOSIS
     Dosage: 600 MG, UNK
     Route: 065
  10. PYRAZINAMIDE. [Suspect]
     Active Substance: PYRAZINAMIDE
     Indication: PULMONARY TUBERCULOSIS
     Dosage: 1500 MG, UNK
     Route: 065
  11. AZITHROMYCIN ANHYDROUS. [Suspect]
     Active Substance: AZITHROMYCIN ANHYDROUS
     Indication: PULMONARY TUBERCULOSIS
     Dosage: 500 MG, UNK (LOADING DOSE)
     Route: 065
  12. AZITHROMYCIN ANHYDROUS. [Suspect]
     Active Substance: AZITHROMYCIN ANHYDROUS
     Dosage: 250 MG, UNK (RECHALLENGED)
     Route: 065
  13. AZITHROMYCIN ANHYDROUS. [Suspect]
     Active Substance: AZITHROMYCIN ANHYDROUS
     Dosage: 250 MG, QD
     Route: 065
  14. INSULIN [Concomitant]
     Active Substance: INSULIN NOS
     Dosage: 22 UNITS, QD, LONG-ACTING INSULIN
     Route: 065

REACTIONS (2)
  - Drug level below therapeutic [Not Recovered/Not Resolved]
  - Neuropathy peripheral [Not Recovered/Not Resolved]
